FAERS Safety Report 8471183-1 (Version None)
Quarter: 2012Q2

REPORT INFORMATION
  Report Type: 
  Country: None (occurrence: None)
  Receive Date: 20120627
  Receipt Date: 20120621
  Transmission Date: 20120825
  Serious: Yes (Other)
  Sender: FDA-Public Use
  Company Number: KR-BAYER-2012-060615

PATIENT
  Sex: Female

DRUGS (2)
  1. YASMIN [Suspect]
     Indication: VAGINAL HAEMORRHAGE
     Dosage: UNK
  2. MIRENA [Suspect]

REACTIONS (3)
  - GENITAL HAEMORRHAGE [None]
  - DEVICE DISLOCATION [None]
  - VISUAL IMPAIRMENT [None]
